FAERS Safety Report 10028142 (Version 1)
Quarter: 2014Q1

REPORT INFORMATION
  Report Type: Spontaneous
  Country: US (occurrence: None)
  Receive Date: 20140319
  Receipt Date: 20140319
  Transmission Date: 20141002
  Serious: Yes (Other)
  Sender: FDA-Public Use
  Company Number: ADE14-007

PATIENT
  Age: 77 Year
  Sex: Female
  Weight: 80.9 kg

DRUGS (2)
  1. HEPARIN SODIUM [Suspect]
     Indication: CORONARY ARTERY BYPASS
     Dosage: 58,000 U TOTAL DOSE, IV
     Route: 042
     Dates: start: 20140219, end: 20140219
  2. AMINOCAPROIC ACID [Concomitant]

REACTIONS (1)
  - Drug effect decreased [None]
